FAERS Safety Report 17803713 (Version 1)
Quarter: 2020Q2

REPORT INFORMATION
  Report Type: Spontaneous
  Country: SE (occurrence: SE)
  Receive Date: 20200519
  Receipt Date: 20200519
  Transmission Date: 20200714
  Serious: Yes (Hospitalization)
  Sender: FDA-Public Use
  Company Number: SE-MYLANLABS-2020M1048379

PATIENT
  Age: 77 Year
  Sex: Male

DRUGS (1)
  1. CYKLOKAPRON [Suspect]
     Active Substance: TRANEXAMIC ACID
     Indication: HAEMATURIA
     Dosage: 500 MG 2X3
     Route: 048
     Dates: start: 20200413, end: 20200414

REACTIONS (2)
  - Embolism [Not Recovered/Not Resolved]
  - Angina unstable [Not Recovered/Not Resolved]

NARRATIVE: CASE EVENT DATE: 20200413
